FAERS Safety Report 8603238-2 (Version None)
Quarter: 2012Q3

REPORT INFORMATION
  Report Type: 
  Country: None (occurrence: None)
  Receive Date: 20120817
  Receipt Date: 20120807
  Transmission Date: 20120928
  Serious: Yes (Other)
  Sender: FDA-Public Use
  Company Number: NL-ABBOTT-12P-114-0947852-00

PATIENT
  Sex: Female

DRUGS (9)
  1. HUMIRA [Suspect]
     Dates: start: 20120301, end: 20120614
  2. HUMIRA [Suspect]
     Dates: start: 20110901, end: 20120301
  3. LEVOTHYROXINE SODIUM [Concomitant]
     Indication: HYPOTHYROIDISM
     Route: 048
     Dates: start: 20100201
  4. DICLOFENAC [Concomitant]
     Indication: RHEUMATOID ARTHRITIS
     Route: 048
     Dates: start: 20060627
  5. FOLIC ACID [Concomitant]
     Indication: RHEUMATOID ARTHRITIS
     Route: 048
     Dates: start: 20040405
  6. SIMVASTATIN [Concomitant]
     Indication: RHEUMATOID ARTHRITIS
     Dosage: 20 MG DAILY
     Dates: start: 20090911
  7. LUBRICANTIA [Concomitant]
     Indication: PRODUCT USED FOR UNKNOWN INDICATION
  8. HUMIRA [Suspect]
     Indication: RHEUMATOID ARTHRITIS
     Dates: start: 20051001, end: 20110901
  9. METHOTREXATE [Suspect]
     Indication: RHEUMATOID ARTHRITIS
     Route: 048
     Dates: start: 20040405

REACTIONS (6)
  - SJOGREN'S SYNDROME [None]
  - WEGENER'S GRANULOMATOSIS [None]
  - SCLERITIS [None]
  - CORNEAL PERFORATION [None]
  - DRUG SCREEN FALSE POSITIVE [None]
  - CORNEAL DISORDER [None]
